FAERS Safety Report 6157337-8 (Version None)
Quarter: 2009Q2

REPORT INFORMATION
  Report Type: 
  Country: None (occurrence: None)
  Receive Date: 20090416
  Receipt Date: 20090407
  Transmission Date: 20091009
  Serious: Yes (Hospitalization)
  Sender: FDA-Public Use
  Company Number: CA-AVENTIS-200913699GDDC

PATIENT
  Age: 48 Year
  Sex: Female

DRUGS (5)
  1. TAXOTERE [Suspect]
     Dosage: DOSE: UNK
     Route: 042
     Dates: start: 20090323, end: 20090323
  2. ALTACE [Concomitant]
     Indication: HYPERTENSION
     Dosage: DOSE: UNK
     Route: 048
  3. FLUOROURACIL [Concomitant]
     Dosage: DOSE: UNK
  4. EPIRUBICIN [Concomitant]
     Dosage: DOSE: UNK
  5. CYCLOPHOSPHAMIDE [Concomitant]
     Dosage: DOSE: UNK

REACTIONS (1)
  - BLOOD CREATININE INCREASED [None]
